FAERS Safety Report 8616552 (Version 2)
Quarter: 2013Q3

REPORT INFORMATION
  Report Type: Spontaneous
  Country: US (occurrence: US)
  Receive Date: 20120615
  Receipt Date: 20130809
  Transmission Date: 20140515
  Serious: Yes (Hospitalization)
  Sender: FDA-Public Use
  Company Number: US-ASTRAZENECA-2012SE35510

PATIENT
  Age: 662 Month
  Sex: Female

DRUGS (7)
  1. NEXIUM [Suspect]
     Indication: GASTROOESOPHAGEAL REFLUX DISEASE
     Dosage: ONCE DAILY MAY BE TWICE
     Route: 048
     Dates: start: 2006, end: 2010
  2. OMEPRAZOLE [Suspect]
     Route: 048
     Dates: start: 2001
  3. OMEPRAZOLE [Suspect]
     Route: 048
  4. OMEPRAZOLE [Suspect]
     Route: 048
     Dates: start: 20091127
  5. TUMS [Concomitant]
     Dosage: AS NEEDED
  6. SIMVASTATIN [Concomitant]
     Dates: start: 20080806
  7. TOPAMAX [Concomitant]
     Dates: start: 20081205

REACTIONS (14)
  - Chest pain [Unknown]
  - Gastrointestinal disorder [Unknown]
  - Bladder disorder [Unknown]
  - Osteoporosis [Unknown]
  - Multiple fractures [Unknown]
  - Back pain [Unknown]
  - Bone disorder [Unknown]
  - Osteopenia [Unknown]
  - Diverticulitis [Unknown]
  - Thrombosis [Unknown]
  - Migraine [Unknown]
  - Neck deformity [Unknown]
  - Foot fracture [Unknown]
  - Calcium deficiency [Unknown]
